FAERS Safety Report 24132575 (Version 1)
Quarter: 2024Q3

REPORT INFORMATION
  Report Type: Spontaneous
  Country: US (occurrence: US)
  Receive Date: 20240724
  Receipt Date: 20240724
  Transmission Date: 20241017
  Serious: Yes (Death)
  Sender: LABORATOIRES SERB
  Company Number: US-SERB S.A.S.-2159532

PATIENT
  Sex: Female

DRUGS (2)
  1. VORAXAZE [Suspect]
     Active Substance: GLUCARPIDASE
     Indication: Toxicity to various agents
  2. METHOTREXATE [Concomitant]
     Active Substance: METHOTREXATE

REACTIONS (1)
  - Death [Fatal]
